FAERS Safety Report 6553349-0 (Version None)
Quarter: 2010Q1

REPORT INFORMATION
  Report Type: 
  Country: None (occurrence: None)
  Receive Date: 20100127
  Receipt Date: 20090710
  Transmission Date: 20100710
  Serious: No
  Sender: FDA-Public Use
  Company Number: A0797569A

PATIENT
  Sex: Female

DRUGS (2)
  1. SUMATRIPTAN SUCCINATE [Suspect]
     Indication: DRUG USE FOR UNKNOWN INDICATION
     Dosage: 4MG UNKNOWN
     Route: 042
  2. GSK AUTOINJECTOR [Suspect]
     Indication: DRUG USE FOR UNKNOWN INDICATION

REACTIONS (3)
  - DEVICE MALFUNCTION [None]
  - NO ADVERSE EVENT [None]
  - PRODUCT QUALITY ISSUE [None]
